FAERS Safety Report 4662009-2 (Version None)
Quarter: 2005Q2

REPORT INFORMATION
  Report Type: 
  Country: None (occurrence: None)
  Receive Date: 20050512
  Receipt Date: 20050512
  Transmission Date: 20051028
  Serious: Yes (Life-Threatening, Hospitalization)
  Sender: FDA-Public Use
  Company Number: None

PATIENT
  Sex: Male
  Weight: 77 kg

DRUGS (9)
  1. PEGASYS [Suspect]
     Indication: HEPATITIS C
     Dosage: 180MCG  WEEKLY  SUBCUTANEO
     Route: 058
     Dates: start: 20041228, end: 20050322
  2. RIBASPHERE [Suspect]
     Indication: HEPATITIS C
     Dosage: 1000MG   DAILY-400/600-   ORAL
     Route: 048
     Dates: start: 20041228, end: 20050322
  3. APAP TAB [Concomitant]
  4. ABILIFY [Concomitant]
  5. ASPIRIN [Concomitant]
  6. BUPROPION [Concomitant]
  7. CYANOCOBALAMIN [Concomitant]
  8. BENADRYL [Concomitant]
  9. NAPROXEN [Concomitant]

REACTIONS (1)
  - IDIOPATHIC THROMBOCYTOPENIC PURPURA [None]
